FAERS Safety Report 14916097 (Version 2)
Quarter: 2018Q2

REPORT INFORMATION
  Report Type: Spontaneous
  Country: US (occurrence: US)
  Receive Date: 20180518
  Receipt Date: 20180531
  Transmission Date: 20180711
  Serious: No
  Sender: FDA-Public Use
  Company Number: US-GLAXOSMITHKLINE-US2018GSK088998

PATIENT
  Sex: Female

DRUGS (12)
  1. FERROUS SULFATE. [Concomitant]
     Active Substance: FERROUS SULFATE
  2. MELATONIN [Concomitant]
     Active Substance: MELATONIN
  3. PRAVASTATIN. [Concomitant]
     Active Substance: PRAVASTATIN
  4. ALBUTEROL INHALER [Concomitant]
     Active Substance: ALBUTEROL
  5. ALPRAZOLAM. [Concomitant]
     Active Substance: ALPRAZOLAM
  6. ADVAIR DISKUS [Suspect]
     Active Substance: FLUTICASONE PROPIONATE\SALMETEROL XINAFOATE
     Indication: CHRONIC OBSTRUCTIVE PULMONARY DISEASE
     Dosage: 1 PUFF(S), BID
     Route: 055
     Dates: start: 2012
  7. NEXIUM [Concomitant]
     Active Substance: ESOMEPRAZOLE MAGNESIUM
  8. MULTAQ [Concomitant]
     Active Substance: DRONEDARONE
  9. ASPIRIN. [Concomitant]
     Active Substance: ASPIRIN
     Dosage: 85 MG, UNK
  10. FLONASE [Concomitant]
     Active Substance: FLUTICASONE PROPIONATE
  11. ELIQUIS [Concomitant]
     Active Substance: APIXABAN
  12. AMLODIPINE [Concomitant]
     Active Substance: AMLODIPINE BESYLATE

REACTIONS (4)
  - Renal disorder [Unknown]
  - Throat irritation [Unknown]
  - Cardiac disorder [Unknown]
  - Dysphagia [Recovered/Resolved]
